FAERS Safety Report 6747319 (Version 11)
Quarter: 2012Q4

REPORT INFORMATION
  Report Type: 
  Country: US (occurrence: US)
  Receive Date: 20080904
  Receipt Date: 20121102
  Transmission Date: 20130627
  Serious: Yes (Other)
  Sender: FDA-Public Use
  Company Number: PHEH2008US07607

PATIENT
  Age: 49 Year
  Sex: Female

DRUGS (32)
  1. ZOMETA [Suspect]
     Dates: start: 20040913, end: 200606
  2. AREDIA [Suspect]
  3. LORTAB [Concomitant]
     Dosage: 7.5 mg,
  4. TAMOXIFEN [Concomitant]
  5. ADVIL [Concomitant]
  6. CEPHALEXIN [Concomitant]
  7. OXYCODONE HYDROCHLORIDE W/PARACETAMOL [Concomitant]
  8. LEXAPRO [Concomitant]
  9. DEXAMETHASONE [Concomitant]
  10. AMBIEN [Concomitant]
  11. ZITHROMAX ^HEINRICH MACK^ [Concomitant]
  12. FERROUS SULFATE [Concomitant]
  13. ZIAC [Concomitant]
  14. DARVOCET-N [Concomitant]
  15. NORCO [Concomitant]
  16. BLOOD TRANSFUSION, AUXILIARY PRODUCTS [Concomitant]
  17. VICODIN [Concomitant]
  18. SYNTHROID [Concomitant]
  19. CORZIDE ^MONARCH^ [Concomitant]
  20. LEVOXYL [Concomitant]
  21. XANAX [Concomitant]
  22. CALCIUM [Concomitant]
  23. SHARK CARTILAGE [Concomitant]
  24. GLUCOSAMINE [Concomitant]
  25. FLAXSEED OIL [Concomitant]
  26. ZOFRAN [Concomitant]
     Route: 017
  27. FENTANYL [Concomitant]
     Dosage: 25 mg, UNK
     Route: 042
  28. MIRALAX [Concomitant]
  29. TUMS [Concomitant]
  30. POLYETHYLENE GLYCOL [Concomitant]
  31. CLONAZEPAM [Concomitant]
  32. LORAZEPAM [Concomitant]

REACTIONS (63)
  - Uterine leiomyoma [Unknown]
  - Atelectasis [Unknown]
  - Thyroid mass [Unknown]
  - Hepatic steatosis [Unknown]
  - Paget^s disease of nipple [Unknown]
  - Osteonecrosis of jaw [Unknown]
  - Infection [Unknown]
  - Dental fistula [Recovered/Resolved]
  - Bone disorder [Unknown]
  - Pain [Unknown]
  - Tooth fracture [Unknown]
  - Tooth abscess [Unknown]
  - Impaired healing [Unknown]
  - Nerve injury [Unknown]
  - Osteitis [Unknown]
  - Swelling [Unknown]
  - Paraesthesia [Unknown]
  - Metastases to bone [Unknown]
  - Concomitant disease progression [Unknown]
  - Depression [Unknown]
  - Pulmonary mass [Unknown]
  - Weight increased [Unknown]
  - Goitre [Unknown]
  - Osteoporosis [Unknown]
  - Myalgia [Unknown]
  - Upper respiratory tract infection [Unknown]
  - Dry skin [Unknown]
  - Fatigue [Unknown]
  - Dysgeusia [Unknown]
  - Renal cyst [Unknown]
  - Bone pain [Unknown]
  - Intervertebral disc degeneration [Unknown]
  - T-lymphocyte count increased [Unknown]
  - Osteosclerosis [Unknown]
  - Tooth loss [Unknown]
  - Visual impairment [Unknown]
  - Night sweats [Unknown]
  - Neoplasm progression [Unknown]
  - Malignant neoplasm progression [Unknown]
  - Breast cyst [Unknown]
  - Dental caries [Unknown]
  - Pleural effusion [Unknown]
  - Seroma [Unknown]
  - Pneumothorax [Unknown]
  - Breast mass [Unknown]
  - Rib fracture [Unknown]
  - Bone lesion [Unknown]
  - Oral disorder [Unknown]
  - Arthralgia [Unknown]
  - Macrocytosis [Unknown]
  - Hot flush [Unknown]
  - Oedema peripheral [Unknown]
  - Renal disorder [Unknown]
  - Metastases to liver [Unknown]
  - Metastases to spleen [Unknown]
  - Diverticulum [Unknown]
  - Sinus tachycardia [Unknown]
  - Hypercalcaemia [Unknown]
  - Dyspnoea [Unknown]
  - Hyponatraemia [Unknown]
  - Anxiety [Unknown]
  - Carpal tunnel syndrome [Unknown]
  - Bronchitis viral [Unknown]
